FAERS Safety Report 4804449-4 (Version None)
Quarter: 2005Q4

REPORT INFORMATION
  Report Type: 
  Country: None (occurrence: None)
  Receive Date: 20051020
  Receipt Date: 20051013
  Transmission Date: 20060501
  Serious: Yes (Hospitalization)
  Sender: FDA-Public Use
  Company Number: 2005CG01705

PATIENT
  Age: 71 Year
  Sex: Male
  Weight: 60 kg

DRUGS (12)
  1. NEXIUM [Suspect]
     Route: 048
     Dates: start: 20050530, end: 20050930
  2. DIPRIVAN [Suspect]
     Route: 042
     Dates: start: 20050919, end: 20050919
  3. DEPAKENE [Suspect]
     Indication: CONVULSION
     Route: 048
     Dates: start: 20010101, end: 20050930
  4. NITRODERM [Suspect]
     Route: 062
     Dates: end: 20050915
  5. SOLU-MEDROL [Suspect]
     Route: 042
     Dates: end: 20050915
  6. LOVENOX [Suspect]
     Route: 058
     Dates: start: 20050528, end: 20050923
  7. CORDARONE [Suspect]
     Indication: ARRHYTHMIA
     Route: 048
     Dates: start: 20050710, end: 20050914
  8. CORDARONE [Suspect]
     Indication: ATRIAL FIBRILLATION
     Route: 048
     Dates: start: 20050710, end: 20050914
  9. ROCEPHIN [Suspect]
     Dates: start: 20050917, end: 20050918
  10. SCOPOLAMINE [Suspect]
     Dates: start: 20050915, end: 20050915
  11. SCOPOLAMINE [Suspect]
     Dates: start: 20050918, end: 20050918
  12. CELOCURINE [Suspect]
     Dates: start: 20050919, end: 20050919

REACTIONS (8)
  - AGITATION [None]
  - ARRHYTHMIA [None]
  - ATRIAL FIBRILLATION [None]
  - HEAD INJURY [None]
  - PERSONALITY CHANGE DUE TO A GENERAL MEDICAL CONDITION [None]
  - PNEUMONIA ASPIRATION [None]
  - RENAL FAILURE ACUTE [None]
  - SUPERINFECTION LUNG [None]
